FAERS Safety Report 7731946-4 (Version None)
Quarter: 2011Q3

REPORT INFORMATION
  Report Type: 
  Country: None (occurrence: None)
  Receive Date: 20110906
  Receipt Date: 20110718
  Transmission Date: 20111222
  Serious: No
  Sender: FDA-Public Use
  Company Number: US-AMGEN-USASP2011036303

PATIENT
  Age: 75 Year
  Sex: Female

DRUGS (8)
  1. ATENOLOL [Concomitant]
     Dosage: 1 MG, BID
  2. LISINOPRIL [Concomitant]
     Dosage: 1 MG, QD
  3. AMLODIPINE [Concomitant]
     Dosage: 1 MG, QD
  4. ASPIRIN [Concomitant]
     Dosage: 1 MG, QD
  5. CITALOPRAM [Concomitant]
     Dosage: 1 MG, QD
  6. VITAMIN D [Concomitant]
     Dosage: 1 MG, UNK
  7. LORAZEPAM [Concomitant]
     Dosage: 1 MG, BID
  8. PROLIA [Suspect]
     Indication: OSTEOPOROSIS POSTMENOPAUSAL
     Dosage: 60 MG, Q6MO
     Dates: start: 20110621

REACTIONS (5)
  - LOCAL SWELLING [None]
  - URTICARIA [None]
  - FEELING HOT [None]
  - PRURITUS [None]
  - NASAL DISCOMFORT [None]
